FAERS Safety Report 5891021-0 (Version None)
Quarter: 2008Q3

REPORT INFORMATION
  Report Type: 
  Country: None (occurrence: None)
  Receive Date: 20080922
  Receipt Date: 20080915
  Transmission Date: 20090109
  Serious: Yes (Other)
  Sender: FDA-Public Use
  Company Number: B0537673A

PATIENT
  Age: 8 Year
  Sex: Male

DRUGS (2)
  1. AUGMENTIN [Suspect]
     Indication: OROPHARYNGEAL PAIN
     Route: 048
     Dates: start: 20080427, end: 20080430
  2. JUNIFEN [Suspect]
     Route: 048
     Dates: start: 20080426, end: 20080427

REACTIONS (6)
  - CEREBRAL DISORDER [None]
  - CRYING [None]
  - FEAR [None]
  - HALLUCINATIONS, MIXED [None]
  - ILL-DEFINED DISORDER [None]
  - STARING [None]
